FAERS Safety Report 4989223-0 (Version None)
Quarter: 2006Q2

REPORT INFORMATION
  Report Type: 
  Country: None (occurrence: None)
  Receive Date: 20060425
  Receipt Date: 20060410
  Transmission Date: 20061013
  Serious: Yes (Death, Hospitalization, Other)
  Sender: FDA-Public Use
  Company Number: 2006050117

PATIENT
  Age: 28 Year
  Sex: Male

DRUGS (2)
  1. PREDNISONE TAB [Suspect]
     Indication: MUSCULOSKELETAL PAIN
     Dosage: 60 MG (30 MG, 1 IN 12 HR), ORAL
     Route: 048
  2. AZITHROMYCIN [Concomitant]

REACTIONS (13)
  - ACUTE RESPIRATORY DISTRESS SYNDROME [None]
  - ALPHA HAEMOLYTIC STREPTOCOCCAL INFECTION [None]
  - AORTIC VALVE DISEASE [None]
  - BLOOD CULTURE POSITIVE [None]
  - BLOOD LACTATE DEHYDROGENASE INCREASED [None]
  - CARDIAC ARREST [None]
  - CARDIAC VALVE ABSCESS [None]
  - CARDIAC VALVE VEGETATION [None]
  - GENERAL PHYSICAL HEALTH DETERIORATION [None]
  - HAEMATOCRIT DECREASED [None]
  - HAEMOPTYSIS [None]
  - PLEURITIC PAIN [None]
  - SPLINTER HAEMORRHAGES [None]
